FAERS Safety Report 13162826 (Version 3)
Quarter: 2017Q1

REPORT INFORMATION
  Report Type: Report from Study
  Country: GB (occurrence: GB)
  Receive Date: 20170130
  Receipt Date: 20170327
  Transmission Date: 20170428
  Serious: Yes (Other)
  Sender: FDA-Public Use
  Company Number: GB-JNJFOC-20161221898

PATIENT
  Age: 29 Year
  Sex: Female

DRUGS (1)
  1. SIMPONI [Suspect]
     Active Substance: GOLIMUMAB
     Indication: PRODUCT USED FOR UNKNOWN INDICATION
     Route: 058

REACTIONS (4)
  - Urinary tract infection [Unknown]
  - Kidney infection [Unknown]
  - Drug ineffective [Unknown]
  - Pharyngitis [Unknown]

NARRATIVE: CASE EVENT DATE: 201701
